FAERS Safety Report 8291196-2 (Version None)
Quarter: 2012Q2

REPORT INFORMATION
  Report Type: 
  Country: None (occurrence: None)
  Receive Date: 20120417
  Receipt Date: 20120405
  Transmission Date: 20120825
  Serious: Yes (Hospitalization, Other)
  Sender: FDA-Public Use
  Company Number: CA-INCYTE CORPORATION-2012IN000484

PATIENT
  Sex: Female
  Weight: 83 kg

DRUGS (4)
  1. INC424 [Suspect]
     Indication: POLYCYTHAEMIA
     Dosage: 20 MG, BID
     Route: 048
     Dates: start: 20120104, end: 20120321
  2. PERINDOPRIL ERBUMINE [Concomitant]
     Dosage: UNK
     Dates: start: 20040101
  3. METOPROLOL TARTRATE [Concomitant]
     Dosage: UNK
     Dates: start: 20050101
  4. RANITIDINE [Concomitant]
     Dosage: UNK
     Dates: start: 20120314

REACTIONS (3)
  - ATRIAL FIBRILLATION [None]
  - OPTIC ISCHAEMIC NEUROPATHY [None]
  - TEMPORAL ARTERITIS [None]
